FAERS Safety Report 7662860-0 (Version None)
Quarter: 2011Q3

REPORT INFORMATION
  Report Type: 
  Country: None (occurrence: None)
  Receive Date: 20110805
  Receipt Date: 20100914
  Transmission Date: 20111222
  Serious: No
  Sender: FDA-Public Use
  Company Number: US-ABBOTT-10P-163-0670750-00

PATIENT
  Sex: Female
  Weight: 77.18 kg

DRUGS (5)
  1. FELODIPINE [Concomitant]
     Indication: PRODUCT USED FOR UNKNOWN INDICATION
  2. NIASPAN [Suspect]
     Indication: LOW DENSITY LIPOPROTEIN INCREASED
     Dosage: AT 6PM
  3. NIASPAN [Suspect]
     Dosage: AT 6PM
     Dates: start: 20100101
  4. ZETIA [Concomitant]
     Indication: PRODUCT USED FOR UNKNOWN INDICATION
  5. GLIPIZIDE [Concomitant]
     Indication: PRODUCT USED FOR UNKNOWN INDICATION

REACTIONS (5)
  - BLADDER DISORDER [None]
  - PRURITUS [None]
  - GLUCOSE TOLERANCE IMPAIRED [None]
  - DIABETES MELLITUS [None]
  - BLOOD GLUCOSE INCREASED [None]
